FAERS Safety Report 19230627 (Version 8)
Quarter: 2023Q1

REPORT INFORMATION
  Report Type: Report from Study
  Country: ES (occurrence: None)
  Receive Date: 20210507
  Receipt Date: 20230327
  Transmission Date: 20230418
  Serious: Yes (Death, Other)
  Sender: FDA-Public Use
  Company Number: ES-ROCHE-2820753

PATIENT
  Age: 69 Year
  Sex: Male
  Weight: 73 kg

DRUGS (2)
  1. RITUXIMAB [Suspect]
     Active Substance: RITUXIMAB
     Indication: Mantle cell lymphoma
     Dosage: 13 CYCLES OF RITUXIMAB SC 1400 MG ADMINISTERED IN 8 WEEK CYCLES?ON 21/JAN/2021, HE RECEIVED LAST DOS
     Route: 058
     Dates: start: 20210109, end: 20210121
  2. LENALIDOMIDE [Suspect]
     Active Substance: LENALIDOMIDE
     Indication: Mantle cell lymphoma
     Dosage: 26 CYCLES LENALIDOMIDE 15 MG 3 WEEKS EVERY 4 WEEKS FOR 24 MONTHS, ON 28/JAN/2021, 10/FEB/2021, HE RE
     Route: 065
     Dates: start: 20210110, end: 20210210

REACTIONS (3)
  - Myelodysplastic syndrome [Recovered/Resolved]
  - Refractory anaemia with an excess of blasts [Not Recovered/Not Resolved]
  - Acute myeloid leukaemia [Fatal]

NARRATIVE: CASE EVENT DATE: 20210303
